FAERS Safety Report 6338715-0 (Version None)
Quarter: 2009Q3

REPORT INFORMATION
  Report Type: 
  Country: None (occurrence: None)
  Receive Date: 20090903
  Receipt Date: 20090211
  Transmission Date: 20100115
  Serious: No
  Sender: FDA-Public Use
  Company Number: A0768225A

PATIENT
  Age: 33 Year
  Sex: Male

DRUGS (2)
  1. RELENZA [Suspect]
     Dosage: 2PUFF TWICE PER DAY
     Route: 055
     Dates: start: 20090207, end: 20090211
  2. AMOXICILLIN [Concomitant]

REACTIONS (1)
  - PAROSMIA [None]
